FAERS Safety Report 8890912 (Version 3)
Quarter: 2013Q1

REPORT INFORMATION
  Report Type: Spontaneous
  Country: US (occurrence: US)
  Receive Date: 20121107
  Receipt Date: 20130226
  Transmission Date: 20140127
  Serious: Yes (Other)
  Sender: FDA-Public Use
  Company Number: US-ELI_LILLY_AND_COMPANY-US201210009625

PATIENT
  Sex: Male
  Weight: 89.8 kg

DRUGS (16)
  1. HUMULIN REGULAR [Suspect]
     Indication: TYPE 1 DIABETES MELLITUS
     Dosage: UNK, UNKNOWN
  2. HUMALOG LISPRO [Suspect]
     Indication: TYPE 1 DIABETES MELLITUS
     Dosage: UNK UNK, PRN
     Route: 058
  3. HUMALOG LISPRO [Suspect]
     Dosage: UNK, PRN
     Route: 058
  4. INSULIN [Concomitant]
     Dosage: UNK, UNKNOWN
  5. LIPITOR [Concomitant]
     Dosage: 80 MG, QD
  6. VITAMIN D [Concomitant]
     Dosage: 1.25 MG, WEEKLY (1/W)
  7. ASPIRIN                                 /USA/ [Concomitant]
     Dosage: 81 MG, QD
  8. HYDROCHLOROTHIAZIDE [Concomitant]
     Dosage: 12.5 MG, QD
  9. CARVEDILOL [Concomitant]
     Dosage: 12.5 MG, BID
  10. CARVEDILOL [Concomitant]
     Dosage: 6.25 MG, UNKNOWN
  11. CARVEDILOL [Concomitant]
     Dosage: 12.5 MG, BID
  12. EPLERENONE [Concomitant]
     Dosage: 50 MG, QD
  13. LOSARTAN [Concomitant]
     Dosage: 100 MG, QD
  14. ALPRAZOLAM [Concomitant]
     Dosage: 0.5 MG, PRN
  15. LORATADINE [Concomitant]
     Indication: MULTIPLE ALLERGIES
     Dosage: 10 MG, PRN
  16. INFLUENZA VACCINE [Concomitant]
     Dosage: 1 DF, SINGLE

REACTIONS (7)
  - Hypoglycaemia unawareness [Recovered/Resolved]
  - Dyskinesia [Unknown]
  - Diabetic nephropathy [Not Recovered/Not Resolved]
  - Diabetic neuropathy [Not Recovered/Not Resolved]
  - Memory impairment [Not Recovered/Not Resolved]
  - Nonspecific reaction [Unknown]
  - Drug ineffective [Unknown]
